FAERS Safety Report 15812463 (Version 1)
Quarter: 2019Q1

REPORT INFORMATION
  Report Type: Spontaneous
  Country: US (occurrence: US)
  Receive Date: 20190110
  Receipt Date: 20190110
  Transmission Date: 20190417
  Serious: Yes (Other)
  Sender: FDA-Public Use
  Company Number: None

PATIENT
  Age: 63 Year
  Sex: Female

DRUGS (2)
  1. XGEVA [Concomitant]
     Active Substance: DENOSUMAB
  2. PROLIA [Suspect]
     Active Substance: DENOSUMAB

REACTIONS (1)
  - Cutaneous lupus erythematosus [None]

NARRATIVE: CASE EVENT DATE: 20180901
